FAERS Safety Report 7595647-8 (Version None)
Quarter: 2011Q3

REPORT INFORMATION
  Report Type: 
  Country: None (occurrence: None)
  Receive Date: 20110707
  Receipt Date: 20110630
  Transmission Date: 20111222
  Serious: Yes (Other)
  Sender: FDA-Public Use
  Company Number: PHHY2011ES36421

PATIENT
  Age: 46 Year
  Sex: Male

DRUGS (2)
  1. RIBAVIRIN [Suspect]
     Indication: CHRONIC HEPATITIS
     Dosage: 1000 MG/DAY
     Route: 048
  2. PEGINTERFERON ALFA-2B [Suspect]
     Indication: CHRONIC HEPATITIS
     Dosage: 1.5?G
     Route: 058

REACTIONS (9)
  - VISUAL ACUITY REDUCED [None]
  - MACULAR OEDEMA [None]
  - RETINAL VEIN THROMBOSIS [None]
  - MYALGIA [None]
  - ANAEMIA [None]
  - VISION BLURRED [None]
  - ASTHENIA [None]
  - ARTHRALGIA [None]
  - RETINAL EXUDATES [None]
